FAERS Safety Report 8396531-2 (Version None)
Quarter: 2012Q2

REPORT INFORMATION
  Report Type: 
  Country: None (occurrence: None)
  Receive Date: 20120530
  Receipt Date: 20120523
  Transmission Date: 20120825
  Serious: Yes (Other)
  Sender: FDA-Public Use
  Company Number: DK-BAYER-2012-048610

PATIENT
  Sex: Male

DRUGS (1)
  1. ASPIRIN [Suspect]
     Indication: CORONARY ARTERY DISEASE

REACTIONS (2)
  - PLATELET AGGREGATION INCREASED [None]
  - MYOCARDIAL INFARCTION [None]
